FAERS Safety Report 25244087 (Version 1)
Quarter: 2025Q2

REPORT INFORMATION
  Report Type: Spontaneous
  Country: US (occurrence: US)
  Receive Date: 20250428
  Receipt Date: 20250428
  Transmission Date: 20250716
  Serious: No
  Sender: BOEHRINGER INGELHEIM
  Company Number: US-BoehringerIngelheim-2025-BI-024401

PATIENT

DRUGS (6)
  1. MELOXICAM [Suspect]
     Active Substance: MELOXICAM
     Indication: Pain
  2. MELOXICAM [Suspect]
     Active Substance: MELOXICAM
     Indication: Musculoskeletal stiffness
  3. MELOXICAM [Suspect]
     Active Substance: MELOXICAM
     Indication: Inflammation
  4. NAPROXEN [Concomitant]
     Active Substance: NAPROXEN
     Indication: Musculoskeletal stiffness
  5. NAPROXEN [Concomitant]
     Active Substance: NAPROXEN
     Indication: Inflammation
  6. NAPROXEN [Concomitant]
     Active Substance: NAPROXEN
     Indication: Pain

REACTIONS (1)
  - Drug ineffective [Unknown]
